FAERS Safety Report 7958859-7 (Version None)
Quarter: 2011Q4

REPORT INFORMATION
  Report Type: 
  Country: None (occurrence: None)
  Receive Date: 20111206
  Receipt Date: 20111125
  Transmission Date: 20120403
  Serious: Yes (Hospitalization)
  Sender: FDA-Public Use
  Company Number: FR-BRISTOL-MYERS SQUIBB COMPANY-16257057

PATIENT
  Age: 78 Year
  Sex: Male

DRUGS (7)
  1. IRBESARTAN AND HYDROCHLOROTHIAZIDE [Suspect]
     Route: 048
     Dates: start: 20110802, end: 20110804
  2. PLAVIX [Concomitant]
  3. CRESTOR [Concomitant]
  4. LEXOMIL [Concomitant]
  5. ZOLPIDEM [Concomitant]
  6. SOTALOL HCL [Concomitant]
  7. PANTOPRAZOLE SODIUM [Concomitant]

REACTIONS (4)
  - DYSPHAGIA [None]
  - ASTHENIA [None]
  - NAUSEA [None]
  - DECREASED APPETITE [None]
